FAERS Safety Report 19278463 (Version 1)
Quarter: 2021Q2

REPORT INFORMATION
  Report Type: Spontaneous
  Country: US (occurrence: US)
  Receive Date: 20210520
  Receipt Date: 20210520
  Transmission Date: 20210717
  Serious: No
  Sender: FDA-Public Use
  Company Number: US-ASTRAZENECA-2021A347377

PATIENT
  Age: 24094 Day
  Sex: Female

DRUGS (9)
  1. NORVASC [Concomitant]
     Active Substance: AMLODIPINE BESYLATE
     Indication: HYPERTENSION
     Route: 065
  2. PACLITAXEL/CARBOPLATIN [Concomitant]
     Indication: METASTASES TO LIVER
     Dosage: HAD MORE THAN 6 CARBOTAXAL CYCLES
  3. PACLITAXEL/CARBOPLATIN [Concomitant]
     Indication: LUNG CARCINOMA CELL TYPE UNSPECIFIED RECURRENT
     Dosage: HAD MORE THAN 6 CARBOTAXAL CYCLES
  4. LYNPARZA [Suspect]
     Active Substance: OLAPARIB
     Indication: OVARIAN CANCER RECURRENT
     Route: 048
     Dates: start: 20210412
  5. CELEBREX [Concomitant]
     Active Substance: CELECOXIB
     Indication: ARTHRALGIA
     Dosage: 200.0MG UNKNOWN
     Route: 065
     Dates: start: 20210418
  6. CELEBREX [Concomitant]
     Active Substance: CELECOXIB
     Indication: ARTHRALGIA
     Dosage: 200.0MG UNKNOWN
     Route: 065
     Dates: start: 20210418
  7. AVASTIN [Concomitant]
     Active Substance: BEVACIZUMAB
     Indication: METASTASES TO LIVER
     Dosage: EVERY 3 WEEKS, 15MG/KG
  8. ATIVAN [Concomitant]
     Active Substance: LORAZEPAM
     Route: 065
  9. AVASTIN [Concomitant]
     Active Substance: BEVACIZUMAB
     Indication: LUNG CARCINOMA CELL TYPE UNSPECIFIED RECURRENT
     Dosage: EVERY 3 WEEKS, 15MG/KG

REACTIONS (4)
  - Arthralgia [Unknown]
  - Joint swelling [Recovered/Resolved]
  - Erythema [Unknown]
  - Pain in extremity [Unknown]

NARRATIVE: CASE EVENT DATE: 20210420
